FAERS Safety Report 18659826 (Version 1)
Quarter: 2020Q4

REPORT INFORMATION
  Report Type: Spontaneous
  Country: US (occurrence: US)
  Receive Date: 20201224
  Receipt Date: 20201224
  Transmission Date: 20210114
  Serious: No
  Sender: FDA-Public Use
  Company Number: US-DRREDDYS-USA/USA/20/0130015

PATIENT
  Age: 65 Year
  Sex: Female
  Weight: 43.65 kg

DRUGS (1)
  1. OMEPRAZOLE DELAYED RELEASE CAPSULES 20 MG [Suspect]
     Active Substance: OMEPRAZOLE
     Indication: DYSPEPSIA
     Route: 048
     Dates: end: 20201123

REACTIONS (4)
  - Condition aggravated [Not Recovered/Not Resolved]
  - Oral pain [Recovered/Resolved]
  - Breath odour [Not Recovered/Not Resolved]
  - Hypersensitivity [Unknown]
